FAERS Safety Report 9350855 (Version 1)
Quarter: 2013Q2

REPORT INFORMATION
  Report Type: Report from Study
  Country: US (occurrence: US)
  Receive Date: 20130617
  Receipt Date: 20130617
  Transmission Date: 20140414
  Serious: Yes (Death)
  Sender: FDA-Public Use
  Company Number: US-ABBOTT-13P-163-1103914-00

PATIENT
  Sex: Male

DRUGS (1)
  1. GENGRAF [Suspect]
     Indication: PRODUCT USED FOR UNKNOWN INDICATION
     Dates: start: 20100222, end: 20130524

REACTIONS (1)
  - Osteomyelitis [Fatal]
